FAERS Safety Report 10971432 (Version 4)
Quarter: 2015Q3

REPORT INFORMATION
  Report Type: Spontaneous
  Country: US (occurrence: US)
  Receive Date: 20150331
  Receipt Date: 20150814
  Transmission Date: 20151125
  Serious: Yes (Hospitalization, Other)
  Sender: FDA-Public Use
  Company Number: US-BRISTOL-MYERS SQUIBB COMPANY-BMS-2015-018047

PATIENT
  Sex: Male
  Weight: 110 kg

DRUGS (4)
  1. COUMADINE [Interacting]
     Active Substance: WARFARIN SODIUM
     Indication: MITRAL VALVE REPLACEMENT
     Dosage: 10 MG, QD
     Route: 065
     Dates: start: 201106
  2. XALKORI [Suspect]
     Active Substance: CRIZOTINIB
     Indication: ANAPLASTIC LYMPHOMA KINASE GENE MUTATION
  3. XALKORI [Suspect]
     Active Substance: CRIZOTINIB
     Indication: NON-SMALL CELL LUNG CANCER
     Dosage: 250 MG, BID
     Route: 048
     Dates: start: 20140313, end: 20140504
  4. LEVAQUIN [Interacting]
     Active Substance: LEVOFLOXACIN
     Indication: COUGH
     Dosage: 500 MG, QD
     Route: 065

REACTIONS (6)
  - International normalised ratio increased [Unknown]
  - Ear haemorrhage [Recovered/Resolved]
  - Drug-induced liver injury [Recovered/Resolved]
  - Labelled drug-drug interaction medication error [Unknown]
  - Haematuria [Unknown]
  - Toxicity to various agents [Unknown]
